FAERS Safety Report 18146980 (Version 3)
Quarter: 2020Q4

REPORT INFORMATION
  Report Type: Spontaneous
  Country: US (occurrence: US)
  Receive Date: 20200814
  Receipt Date: 20201110
  Transmission Date: 20210113
  Serious: Yes (Other)
  Sender: FDA-Public Use
  Company Number: US-BAUSCH-BL-2020-022506

PATIENT
  Age: 44 Year
  Sex: Female
  Weight: 73.55 kg

DRUGS (5)
  1. MESALAMINE EXTENDED-RELEASE CAPSULES [Suspect]
     Active Substance: MESALAMINE
     Indication: COLITIS ULCERATIVE
     Route: 065
     Dates: start: 2020, end: 2020
  2. MESALAMINE EXTENDED-RELEASE CAPSULES [Suspect]
     Active Substance: MESALAMINE
     Indication: COLITIS MICROSCOPIC
  3. AMBIEN [Concomitant]
     Active Substance: ZOLPIDEM TARTRATE
     Indication: PRODUCT USED FOR UNKNOWN INDICATION
  4. APRISO [Concomitant]
     Active Substance: MESALAMINE
     Indication: COLITIS ULCERATIVE
     Dates: end: 202006
  5. APRISO [Concomitant]
     Active Substance: MESALAMINE
     Dates: start: 2020

REACTIONS (2)
  - Colitis ulcerative [Recovered/Resolved]
  - Drug ineffective [Unknown]

NARRATIVE: CASE EVENT DATE: 2020
